FAERS Safety Report 6610196-9 (Version None)
Quarter: 2010Q1

REPORT INFORMATION
  Report Type: 
  Country: None (occurrence: None)
  Receive Date: 20100302
  Receipt Date: 20100128
  Transmission Date: 20100710
  Serious: Yes (Other)
  Sender: FDA-Public Use
  Company Number: TK-BAYER-200936099GPV

PATIENT
  Age: 46 Year
  Sex: Female
  Weight: 75 kg

DRUGS (6)
  1. BETAFERON [Suspect]
     Indication: MULTIPLE SCLEROSIS
     Route: 058
     Dates: start: 19970101
  2. LERCADIP [Interacting]
     Indication: HYPERTENSION
     Dosage: TOTAL DAILY DOSE: 60 MG
     Route: 048
  3. LYRICA [Concomitant]
     Indication: EPILEPSY
     Route: 048
  4. RANTUDIL [Concomitant]
     Route: 048
  5. DUSPETALIN [Concomitant]
     Dosage: TOTAL DAILY DOSE: 100 MG
     Route: 048
  6. VASOXEN [Concomitant]
     Dosage: TOTAL DAILY DOSE: 5 MG
     Route: 048

REACTIONS (5)
  - DYSKINESIA [None]
  - ERYTHEMA [None]
  - FORMICATION [None]
  - HYPERTENSION [None]
  - TREMOR [None]
